FAERS Safety Report 9601325 (Version 1)
Quarter: 2013Q4

REPORT INFORMATION
  Report Type: Report from Study
  Country: PE (occurrence: PE)
  Receive Date: 20131007
  Receipt Date: 20131007
  Transmission Date: 20140711
  Serious: Yes (Other)
  Sender: FDA-Public Use
  Company Number: PE-ROCHE-1285427

PATIENT
  Age: 75 Year
  Sex: Female

DRUGS (1)
  1. HERCEPTIN [Suspect]
     Indication: BREAST CANCER
     Dosage: DOSE INTERRUPTED
     Route: 042
     Dates: start: 20110502, end: 201207

REACTIONS (1)
  - Cardiac disorder [Unknown]
